FAERS Safety Report 8777252 (Version 1)
Quarter: 2012Q4

REPORT INFORMATION
  Report Type: 
  Country: FR (occurrence: FR)
  Receive Date: 20120910
  Receipt Date: 20120910
  Transmission Date: 20130627
  Serious: Yes (Death)
  Sender: FDA-Public Use
  Company Number: FR-ASTRAZENECA-2012SE69902

PATIENT
  Age: 86 Year
  Sex: Female

DRUGS (5)
  1. MOPRAL [Suspect]
     Route: 048
  2. CITALOPRAM [Interacting]
  3. EBIXA [Suspect]
  4. NORSET [Suspect]
  5. EQUANIL [Suspect]

REACTIONS (3)
  - Pulmonary embolism [Fatal]
  - Phlebitis [Fatal]
  - Drug interaction [Fatal]
